FAERS Safety Report 11426784 (Version 2)
Quarter: 2015Q3

REPORT INFORMATION
  Report Type: Spontaneous
  Country: US (occurrence: US)
  Receive Date: 20150821
  Receipt Date: 20150903
  Transmission Date: 20151125
  Serious: No
  Sender: FDA-Public Use
  Company Number: US-ELI_LILLY_AND_COMPANY-US201009002689

PATIENT
  Sex: Female

DRUGS (4)
  1. HUMALOG [Suspect]
     Active Substance: INSULIN LISPRO
     Indication: DIABETES MELLITUS
     Dosage: 10 U, 2/D
     Dates: start: 20090921
  2. HUMULIN N [Suspect]
     Active Substance: INSULIN HUMAN
     Indication: DIABETES MELLITUS
     Dosage: UNK, UNK
     Dates: start: 19650921, end: 20090920
  3. HUMALOG [Suspect]
     Active Substance: INSULIN LISPRO
     Dosage: 5 U, AS NEEDED
     Dates: start: 20090921
  4. LANTUS [Concomitant]
     Active Substance: INSULIN GLARGINE
     Dosage: 15 U, DAILY (1/D)

REACTIONS (4)
  - Malaise [Unknown]
  - Drug dose omission [Unknown]
  - Blood glucose increased [Recovered/Resolved]
  - Glaucoma [Not Recovered/Not Resolved]
